FAERS Safety Report 10074094 (Version 1)
Quarter: 2014Q2

REPORT INFORMATION
  Report Type: Spontaneous
  Country: US (occurrence: US)
  Receive Date: 20140411
  Receipt Date: 20140411
  Transmission Date: 20141212
  Serious: No
  Sender: FDA-Public Use
  Company Number: US-SA-2014SA011697

PATIENT
  Age: 58 Year
  Sex: Male

DRUGS (1)
  1. ALLEGRA D [Suspect]
     Indication: HYPERSENSITIVITY
     Dosage: START- AROUND 3 WEEKS AGO
     Route: 048
     Dates: end: 20140127

REACTIONS (3)
  - Urine flow decreased [Not Recovered/Not Resolved]
  - Prostatic specific antigen increased [Not Recovered/Not Resolved]
  - Drug ineffective [Unknown]
